FAERS Safety Report 26134700 (Version 1)
Quarter: 2025Q4

REPORT INFORMATION
  Report Type: Spontaneous
  Country: CA (occurrence: CA)
  Receive Date: 20251209
  Receipt Date: 20251209
  Transmission Date: 20260118
  Serious: Yes (Hospitalization)
  Sender: TEVA
  Company Number: CA-TEVA-VS-3400937

PATIENT
  Age: 51 Year
  Sex: Female
  Weight: 47 kg

DRUGS (1)
  1. LENALIDOMIDE [Suspect]
     Active Substance: LENALIDOMIDE
     Indication: Product used for unknown indication
     Route: 048

REACTIONS (2)
  - Cutaneous vasculitis [Recovering/Resolving]
  - Skin reaction [Recovering/Resolving]
